FAERS Safety Report 8776028 (Version 2)
Quarter: 2012Q4

REPORT INFORMATION
  Report Type: 
  Country: FR (occurrence: FR)
  Receive Date: 20120910
  Receipt Date: 20120910
  Transmission Date: 20130627
  Serious: Yes (Hospitalization)
  Sender: FDA-Public Use
  Company Number: FR-PFIZER INC-FR-WYE-G04428509

PATIENT
  Age: 82 Year
  Sex: Female

DRUGS (13)
  1. TAZOCILLINE [Suspect]
     Dosage: UNK
     Route: 042
     Dates: start: 20090722, end: 20090724
  2. ZYVOXID [Suspect]
     Dosage: UNK
     Route: 065
     Dates: start: 20090722, end: 20090724
  3. KARDEGIC [Concomitant]
     Dosage: 75 mg, UNK
     Route: 048
  4. ALLOPURINOL [Concomitant]
     Dosage: 100 mg, UNK
     Route: 048
  5. AMLOR [Concomitant]
     Route: 048
  6. CLAMOXYL [Concomitant]
     Dosage: UNK
     Route: 065
     Dates: start: 200907
  7. CARDENSIEL [Concomitant]
     Route: 048
  8. SPECIAFOLDINE [Concomitant]
     Route: 048
  9. FOZITEC [Concomitant]
     Route: 048
  10. LASILIX [Concomitant]
     Dosage: 40 mg, UNK
     Route: 048
  11. LEVOTHYROX [Concomitant]
     Dosage: 100 mg, UNK
     Route: 048
  12. INIPOMP [Concomitant]
     Dosage: 20 mg, UNK
     Route: 048
  13. STILNOX [Concomitant]
     Route: 048

REACTIONS (5)
  - Acute generalised exanthematous pustulosis [Recovered/Resolved]
  - Bacterial pyelonephritis [Recovered/Resolved]
  - Urinary tract infection enterococcal [Recovered/Resolved]
  - Septic shock [Recovered/Resolved]
  - Condition aggravated [Recovered/Resolved]
